FAERS Safety Report 13704013 (Version 2)
Quarter: 2017Q3

REPORT INFORMATION
  Report Type: Spontaneous
  Country: EG (occurrence: EG)
  Receive Date: 20170629
  Receipt Date: 20170717
  Transmission Date: 20171127
  Serious: No
  Sender: FDA-Public Use
  Company Number: PHHY2017EG091016

PATIENT
  Age: 5 Year
  Sex: Male
  Weight: 16 kg

DRUGS (1)
  1. CEFTRIAXONE. [Suspect]
     Active Substance: CEFTRIAXONE
     Indication: UPPER RESPIRATORY TRACT INFECTION
     Dosage: 0.5 G, VIAL UNK
     Route: 030

REACTIONS (17)
  - Ear swelling [Recovering/Resolving]
  - Sneezing [Recovering/Resolving]
  - Flushing [Recovering/Resolving]
  - Hypersensitivity [Recovering/Resolving]
  - Hyperventilation [Recovering/Resolving]
  - Erythema [Recovering/Resolving]
  - Chest discomfort [Recovering/Resolving]
  - Wheezing [Recovering/Resolving]
  - Nasal pruritus [Recovering/Resolving]
  - Urticaria [Recovering/Resolving]
  - Rash [Recovering/Resolving]
  - Abdominal pain [Recovering/Resolving]
  - Skin swelling [Recovering/Resolving]
  - Dyspnoea [Recovering/Resolving]
  - Pyrexia [Recovering/Resolving]
  - Pruritus generalised [Recovering/Resolving]
  - Eyelid oedema [Recovering/Resolving]
